FAERS Safety Report 9009825 (Version 3)
Quarter: 2018Q2

REPORT INFORMATION
  Report Type: Spontaneous
  Country: US (occurrence: US)
  Receive Date: 20130110
  Receipt Date: 20180521
  Transmission Date: 20180711
  Serious: Yes (Death, Hospitalization, Other)
  Sender: FDA-Public Use
  Company Number: US-009507513-1301USA002306

PATIENT
  Sex: Female

DRUGS (2)
  1. FOSAMAX [Suspect]
     Active Substance: ALENDRONATE SODIUM
     Indication: OSTEOPOROSIS
     Dosage: 70 MG, QW
     Route: 048
     Dates: start: 2000, end: 2006
  2. BONIVA [Suspect]
     Active Substance: IBANDRONATE SODIUM
     Indication: OSTEOPOROSIS
     Dosage: 150 MG, MONTHLY
     Route: 065
     Dates: start: 2006, end: 2010

REACTIONS (36)
  - Medical device pain [Unknown]
  - Femur fracture [Unknown]
  - Fall [Unknown]
  - Gastrointestinal haemorrhage [Unknown]
  - Anxiety [Unknown]
  - Raynaud^s phenomenon [Unknown]
  - Oedema [Unknown]
  - Aortic stenosis [Unknown]
  - Heart valve incompetence [Unknown]
  - Hypertension [Unknown]
  - Shoulder operation [Unknown]
  - Aortic bruit [Unknown]
  - Osteoarthritis [Unknown]
  - Spinal compression fracture [Unknown]
  - Dizziness [Unknown]
  - Anxiety [Not Recovered/Not Resolved]
  - Chronic obstructive pulmonary disease [Unknown]
  - Vitamin B12 deficiency [Unknown]
  - Anaemia folate deficiency [Unknown]
  - Knee operation [Unknown]
  - Peripheral vascular disorder [Unknown]
  - Intramedullary rod insertion [Unknown]
  - Intramedullary rod insertion [Unknown]
  - Urinary tract infection [Unknown]
  - Hypokalaemia [Unknown]
  - Hypomagnesaemia [Unknown]
  - Anaemia postoperative [Unknown]
  - Device failure [Unknown]
  - Femur fracture [Unknown]
  - Femur fracture [Unknown]
  - Peptic ulcer [Unknown]
  - Pancreatic carcinoma [Fatal]
  - Neuropathy peripheral [Unknown]
  - Joint effusion [Unknown]
  - Intramedullary rod insertion [Unknown]
  - Gastrooesophageal reflux disease [Unknown]

NARRATIVE: CASE EVENT DATE: 201011
